FAERS Safety Report 21452828 (Version 4)
Quarter: 2022Q4

REPORT INFORMATION
  Report Type: Report from Study
  Country: FR (occurrence: None)
  Receive Date: 20221013
  Receipt Date: 20221114
  Transmission Date: 20230112
  Serious: Yes (Life-Threatening)
  Sender: FDA-Public Use
  Company Number: FR-ROCHE-3196537

PATIENT
  Age: 75 Year
  Sex: Male
  Weight: 88 kg

DRUGS (22)
  1. GLOFITAMAB [Suspect]
     Active Substance: GLOFITAMAB
     Indication: Diffuse large B-cell lymphoma
     Dosage: THE START DATE OF MOST RECENT DOSE OF GLOFITAMAB (30 MG) PRIOR TO AE AND SAE ONSET: 08/SEP/2022
     Route: 042
     Dates: start: 20220727
  2. TOCILIZUMAB [Suspect]
     Active Substance: TOCILIZUMAB
     Indication: Diffuse large B-cell lymphoma
     Dosage: AS PER PROTOCOL
     Route: 042
  3. RITUXIMAB [Suspect]
     Active Substance: RITUXIMAB
     Indication: Diffuse large B-cell lymphoma
     Dosage: THE START DATE OF MOST RECENT DOSE OF RITUXIMAB (375 MG/M2) PRIOR TO AE AND SAE ONSET: 22/SEP/2022
     Route: 041
     Dates: start: 20220608
  4. CYCLOPHOSPHAMIDE [Suspect]
     Active Substance: CYCLOPHOSPHAMIDE
     Indication: Diffuse large B-cell lymphoma
     Dosage: THE START DATE OF MOST RECENT DOSE OF CYCLOPHOSPHAMIDE (750 MG/M2) PRIOR TO AE AND SAE ONSET: 22/SEP
     Route: 042
     Dates: start: 20220608
  5. DOXORUBICIN [Suspect]
     Active Substance: DOXORUBICIN
     Indication: Diffuse large B-cell lymphoma
     Dosage: THE START DATE OF MOST RECENT DOSE OF DOXORUBICIN (50 MG/M2) PRIOR TO AE AND SAE ONSET: 22/SEP/2022
     Route: 042
     Dates: start: 20220608
  6. PREDNISONE [Suspect]
     Active Substance: PREDNISONE
     Indication: Diffuse large B-cell lymphoma
     Dosage: NEXT DOSE RECEIVED ON 31/AUG/2022 100 MG FREQUENCY OTHER.?THE START DATE OF MOST RECENT DOSE OF PRED
     Route: 048
     Dates: start: 20220609
  7. METHYLPREDNISOLONE [Suspect]
     Active Substance: METHYLPREDNISOLONE
     Indication: Diffuse large B-cell lymphoma
     Dosage: AS PER PROTOCOL.?DATE OF MOST RECENT DOSE OF STUDY DRUG PRIOR TO SAE: 29/JUN/2022
     Route: 042
     Dates: start: 20220608
  8. VINCRISTINE [Suspect]
     Active Substance: VINCRISTINE
     Indication: Diffuse large B-cell lymphoma
     Dosage: THE START DATE OF MOST RECENT DOSE OF VINCRISTINE (1.4 MG/M2) PRIOR TO AE AND SAE ONSET: 22/SEP/2022
     Route: 042
     Dates: start: 20220608
  9. PREDNISOLONE [Suspect]
     Active Substance: PREDNISOLONE
     Indication: Diffuse large B-cell lymphoma
     Dosage: AS PER PROTOCOL?DATE OF MOST RECENT DOSE OF STUDY DRUG PRIOR TO SAE: 22/SEP/2022
     Route: 042
     Dates: start: 20220722
  10. LEVOTHYROXINE [Concomitant]
     Active Substance: LEVOTHYROXINE
     Indication: Thyroid disorder
     Route: 048
  11. TAHOR [Concomitant]
     Active Substance: ATORVASTATIN CALCIUM
     Route: 048
  12. PANTOPRAZOLE [Concomitant]
     Active Substance: PANTOPRAZOLE
     Route: 048
     Dates: start: 20220601
  13. BACTRIM [Concomitant]
     Active Substance: SULFAMETHOXAZOLE\TRIMETHOPRIM
     Dates: start: 20220608
  14. VALACYCLOVIR HYDROCHLORIDE [Concomitant]
     Active Substance: VALACYCLOVIR HYDROCHLORIDE
     Route: 048
     Dates: start: 20220608
  15. LEUCOVORIN CALCIUM [Concomitant]
     Active Substance: LEUCOVORIN CALCIUM
     Route: 048
     Dates: start: 20220608
  16. ACETAMINOPHEN [Concomitant]
     Active Substance: ACETAMINOPHEN
     Route: 048
     Dates: start: 20220831, end: 20220831
  17. LORATADINE [Concomitant]
     Active Substance: LORATADINE
     Route: 048
     Dates: start: 20220831, end: 20220831
  18. LORATADINE [Concomitant]
     Active Substance: LORATADINE
     Route: 048
     Dates: start: 20220922
  19. ONDANSETRON [Concomitant]
     Active Substance: ONDANSETRON
     Route: 048
     Dates: start: 20220831, end: 20220831
  20. GLYCERIN\MINERAL OIL\PETROLATUM [Concomitant]
     Active Substance: GLYCERIN\MINERAL OIL\PETROLATUM
     Route: 061
     Dates: start: 20220922, end: 20221006
  21. NYVEPRIA [Concomitant]
     Active Substance: PEGFILGRASTIM-APGF
     Route: 048
     Dates: start: 20220923, end: 20220926
  22. PREDNISONE [Concomitant]
     Active Substance: PREDNISONE
     Route: 048
     Dates: start: 20220923, end: 20220926

REACTIONS (2)
  - Thrombocytopenia [Recovered/Resolved]
  - Neutropenia [Recovered/Resolved]

NARRATIVE: CASE EVENT DATE: 20220929
